FAERS Safety Report 9414747 (Version 1)
Quarter: 2013Q3

REPORT INFORMATION
  Report Type: Spontaneous
  Country: US (occurrence: US)
  Receive Date: 20130723
  Receipt Date: 20130723
  Transmission Date: 20140515
  Serious: No
  Sender: FDA-Public Use
  Company Number: US-009507513-1307USA011441

PATIENT
  Age: 66 Year
  Sex: Male

DRUGS (3)
  1. STROMECTOL [Suspect]
     Indication: HELMINTHIC INFECTION
     Dosage: 24 MG, ONCE
     Route: 048
     Dates: start: 20130621
  2. KETOCONAZOLE [Concomitant]
  3. DAKINS SOLUTION [Concomitant]

REACTIONS (1)
  - Drug ineffective [Unknown]
